FAERS Safety Report 10361804 (Version 1)
Quarter: 2014Q1

REPORT INFORMATION
  Report Type: Spontaneous
  Country: US (occurrence: None)
  Receive Date: 20140306
  Receipt Date: 20140306
  Transmission Date: 20141002
  Serious: Yes (Other)
  Sender: FDA-Public Use
  Company Number: 163-21880-13080270

PATIENT
  Age: 76 Year
  Sex: Female
  Weight: 54.89 kg

DRUGS (2)
  1. REVLIMID [Suspect]
     Indication: MYELODYSPLASTIC SYNDROME
     Route: 048
     Dates: start: 20120320, end: 20130814
  2. PROCRIT(ERYTHROPOIETIN)(UNKNOWN) [Concomitant]

REACTIONS (1)
  - Pancytopenia [None]
